FAERS Safety Report 10101471 (Version 1)
Quarter: 2014Q2

REPORT INFORMATION
  Report Type: Spontaneous
  Country: US (occurrence: US)
  Receive Date: 20140424
  Receipt Date: 20140424
  Transmission Date: 20141212
  Serious: No
  Sender: FDA-Public Use
  Company Number: US-B.I. PHARMACEUTICALS,INC./RIDGEFIELD-2014-BI-17333BP

PATIENT
  Sex: Female

DRUGS (5)
  1. PRADAXA [Suspect]
     Indication: FACTOR V LEIDEN MUTATION
     Dosage: 300 MG
     Route: 048
     Dates: start: 2012
  2. LAMOTRIGINE [Concomitant]
     Indication: DEPRESSION
     Dosage: 25 MG
     Route: 048
  3. PROZAC [Concomitant]
     Indication: DEPRESSION
     Dosage: 40 MG
     Route: 048
  4. XANAX [Concomitant]
     Indication: DEPRESSION
     Dosage: 1 MG
     Route: 048
  5. RESTORIL [Concomitant]
     Indication: SLEEP DISORDER
     Dosage: 15 MG
     Route: 048

REACTIONS (2)
  - Arthritis [Not Recovered/Not Resolved]
  - Off label use [Unknown]
